FAERS Safety Report 11600677 (Version 1)
Quarter: 2015Q4

REPORT INFORMATION
  Report Type: Spontaneous
  Country: US (occurrence: US)
  Receive Date: 20151006
  Receipt Date: 20151006
  Transmission Date: 20160304
  Serious: No
  Sender: FDA-Public Use
  Company Number: US-AMGEN-USASP2014088228

PATIENT
  Age: 68 Year
  Sex: Female
  Weight: 86.17 kg

DRUGS (5)
  1. DEMADEX [Concomitant]
     Active Substance: TORSEMIDE
     Dosage: 20 MG, 1/2 DAILY
     Route: 048
  2. HYDROCODONE [Concomitant]
     Active Substance: HYDROCODONE
     Dosage: ONE HALF TABLET FOUR TIMES DAILY
     Route: 048
  3. LORAZEPAM. [Concomitant]
     Active Substance: LORAZEPAM
     Dosage: 0.5 MG, TWO TABLETS FOUR TIMES DAILY
     Route: 048
  4. PROLIA [Suspect]
     Active Substance: DENOSUMAB
     Indication: SENILE OSTEOPOROSIS
     Dosage: UNK UNK, Q6MO
     Route: 058
     Dates: start: 20141001, end: 20141112
  5. PROLIA [Suspect]
     Active Substance: DENOSUMAB
     Indication: OSTEOPOROSIS POSTMENOPAUSAL

REACTIONS (3)
  - Arthralgia [Not Recovered/Not Resolved]
  - Bone pain [Unknown]
  - Tooth disorder [Unknown]

NARRATIVE: CASE EVENT DATE: 201410
